FAERS Safety Report 8964199 (Version 1)
Quarter: 2012Q4

REPORT INFORMATION
  Report Type: 
  Country: US (occurrence: US)
  Receive Date: 20121213
  Receipt Date: 20121213
  Transmission Date: 20130627
  Serious: Yes (Death, Hospitalization)
  Sender: FDA-Public Use
  Company Number: PHEH2012US023711

PATIENT
  Age: 81 Year
  Sex: Male
  Weight: 72 kg

DRUGS (2)
  1. EXJADE [Suspect]
     Indication: IRON OVERLOAD
     Dosage: 1000 mg, QD
     Route: 048
     Dates: start: 20121110
  2. RECLAST [Suspect]
     Dosage: UNK UKN, UNK

REACTIONS (1)
  - Acute myeloid leukaemia [Fatal]
